FAERS Safety Report 7821604-X (Version None)
Quarter: 2011Q4

REPORT INFORMATION
  Report Type: 
  Country: None (occurrence: None)
  Receive Date: 20111018
  Receipt Date: 20110802
  Transmission Date: 20120403
  Serious: No
  Sender: FDA-Public Use
  Company Number: US-ASTRAZENECA-2011SE46772

PATIENT
  Sex: Female

DRUGS (2)
  1. SYMBICORT [Suspect]
     Route: 055
  2. CRESTOR [Suspect]
     Route: 048

REACTIONS (2)
  - NASOPHARYNGITIS [None]
  - BLOOD CHOLESTEROL ABNORMAL [None]
